FAERS Safety Report 10271398 (Version 1)
Quarter: 2014Q1

REPORT INFORMATION
  Report Type: Spontaneous
  Country: US (occurrence: None)
  Receive Date: 20140306
  Receipt Date: 20140306
  Transmission Date: 20141002
  Serious: Yes (Other)
  Sender: FDA-Public Use
  Company Number: 163-21880-13083821

PATIENT
  Age: 87 Year
  Sex: Male

DRUGS (2)
  1. REVLIMID ( LENALIDOMIDE) (15 MILLIGRAM, CAPSULES) [Suspect]
     Indication: PLASMA CELL MYELOMA
     Dosage: 15 MG, 1 IN 1 D, PO
     Route: 048
     Dates: start: 201302
  2. WARFARIN ( WARFARIN) (UNKNOWN) [Concomitant]

REACTIONS (2)
  - Pulmonary thrombosis [None]
  - Thrombosis [None]
